FAERS Safety Report 13612904 (Version 4)
Quarter: 2017Q3

REPORT INFORMATION
  Report Type: Spontaneous
  Country: US (occurrence: US)
  Receive Date: 20170605
  Receipt Date: 20170825
  Transmission Date: 20171127
  Serious: Yes (Other)
  Sender: FDA-Public Use
  Company Number: US-SUNOVION-2017SUN002222

PATIENT

DRUGS (4)
  1. LATUDA [Suspect]
     Active Substance: LURASIDONE HYDROCHLORIDE
     Dosage: 80 MG, UNK
     Route: 048
  2. LATUDA [Suspect]
     Active Substance: LURASIDONE HYDROCHLORIDE
     Dosage: UNK
     Route: 048
  3. LOXAPINE. [Concomitant]
     Active Substance: LOXAPINE
     Dosage: UNK
  4. LOXAPINE. [Concomitant]
     Active Substance: LOXAPINE
     Dosage: 10 MG, UNK

REACTIONS (15)
  - Depressed mood [Unknown]
  - Hunger [Unknown]
  - Daydreaming [Unknown]
  - Weight increased [Unknown]
  - Sluggishness [Unknown]
  - Fear [Unknown]
  - Fatigue [Unknown]
  - Somnolence [Unknown]
  - Binge eating [Unknown]
  - Vomiting [Recovering/Resolving]
  - Mental fatigue [Unknown]
  - Drug withdrawal syndrome [Unknown]
  - Anxiety [Unknown]
  - Back pain [Unknown]
  - Asthenia [Unknown]
